FAERS Safety Report 20452029 (Version 9)
Quarter: 2022Q4

REPORT INFORMATION
  Report Type: Spontaneous
  Country: BE (occurrence: BE)
  Receive Date: 20220209
  Receipt Date: 20221013
  Transmission Date: 20230113
  Serious: Yes (Hospitalization)
  Sender: FDA-Public Use
  Company Number: BE-Accord-251404

PATIENT
  Age: 84 Year
  Sex: Female
  Weight: 62.9 kg

DRUGS (38)
  1. RITUXIMAB [Suspect]
     Active Substance: RITUXIMAB
     Indication: Product used for unknown indication
     Route: 042
     Dates: start: 20211115, end: 20211213
  2. RITUXIMAB [Suspect]
     Active Substance: RITUXIMAB
     Route: 042
     Dates: start: 20220103
  3. OXALIPLATIN [Suspect]
     Active Substance: OXALIPLATIN
     Indication: Product used for unknown indication
     Dosage: 1Q2W
     Route: 042
     Dates: start: 20220103
  4. OXALIPLATIN [Suspect]
     Active Substance: OXALIPLATIN
     Route: 042
     Dates: start: 20211115, end: 20211213
  5. GEMCITABINE HYDROCHLORIDE [Suspect]
     Active Substance: GEMCITABINE HYDROCHLORIDE
     Indication: Product used for unknown indication
     Dosage: 1Q2W
     Route: 042
     Dates: start: 20211115, end: 20211213
  6. GEMCITABINE HYDROCHLORIDE [Suspect]
     Active Substance: GEMCITABINE HYDROCHLORIDE
     Dosage: 1Q2W
     Route: 042
     Dates: start: 20220103
  7. SOLU-MEDROL [Suspect]
     Active Substance: METHYLPREDNISOLONE SODIUM SUCCINATE
     Indication: Product used for unknown indication
     Dosage: SINGLE
     Route: 065
     Dates: start: 20211129, end: 20211129
  8. SOLU-MEDROL [Suspect]
     Active Substance: METHYLPREDNISOLONE SODIUM SUCCINATE
     Dosage: SINGLE
     Route: 065
     Dates: start: 20211213, end: 20211213
  9. SOLU-MEDROL [Suspect]
     Active Substance: METHYLPREDNISOLONE SODIUM SUCCINATE
     Dosage: SINGLE
     Route: 065
     Dates: start: 20211115, end: 20211115
  10. NEBIVOLOL [Concomitant]
     Active Substance: NEBIVOLOL
     Dates: start: 20211115
  11. FOLIC ACID [Concomitant]
     Active Substance: FOLIC ACID
  12. NEBIVOLOL HYDROCHLORIDE [Concomitant]
     Active Substance: NEBIVOLOL HYDROCHLORIDE
     Dates: start: 20201211
  13. MAGNESIUM [Concomitant]
     Active Substance: MAGNESIUM
     Dates: start: 20210611
  14. PANTOPRAZOLE SODIUM [Concomitant]
     Active Substance: PANTOPRAZOLE SODIUM
     Dates: start: 20211229, end: 20211231
  15. ULTRA K [Concomitant]
     Dates: start: 20220201, end: 20220203
  16. REMERGON [Concomitant]
     Active Substance: MIRTAZAPINE
     Dates: start: 20220201, end: 20220203
  17. TOULARYNX DEXTROMETHORPHAN [Concomitant]
     Dates: start: 20220102
  18. PALONOSETRON [Concomitant]
     Active Substance: PALONOSETRON
     Dates: start: 20211115
  19. ZYRTEC (BELGIUM) [Concomitant]
     Dates: start: 20211115
  20. MOVICOL [Concomitant]
     Active Substance: POLYETHYLENE GLYCOL 3350\POTASSIUM CHLORIDE\SODIUM BICARBONATE\SODIUM CHLORIDE
     Dates: start: 20200928
  21. ALIZAPRIDE HYDROCHLORIDE [Concomitant]
     Active Substance: ALIZAPRIDE HYDROCHLORIDE
     Dates: start: 20211117
  22. IMODIUM [Concomitant]
     Active Substance: LOPERAMIDE HYDROCHLORIDE
     Dates: start: 20220118
  23. HUMAN IMMUNOGLOBULIN G [Concomitant]
     Active Substance: HUMAN IMMUNOGLOBULIN G
     Dates: start: 20220107, end: 20220107
  24. DAFALGAN [Concomitant]
     Active Substance: ACETAMINOPHEN
     Dates: start: 20211115
  25. MAGNESIUM CITRATE [Concomitant]
     Active Substance: MAGNESIUM CITRATE
     Dates: start: 20220202, end: 20220204
  26. MIRTAZAPINE [Concomitant]
     Active Substance: MIRTAZAPINE
     Dosage: UNKNOWN
     Dates: start: 20211215, end: 20220131
  27. MINITRAN (BELGIUM) [Concomitant]
     Dates: start: 20120214
  28. METFORMIN HYDROCHLORIDE [Concomitant]
     Active Substance: METFORMIN HYDROCHLORIDE
     Dates: start: 20210813
  29. MEDICA [Concomitant]
     Dates: start: 20211230
  30. ATORVASTATIN CALCIUM [Concomitant]
     Active Substance: ATORVASTATIN CALCIUM
     Dates: start: 20200824
  31. TEMESTA [Concomitant]
     Dates: start: 20220104, end: 20220106
  32. ASPIRIN [Concomitant]
     Active Substance: ASPIRIN
     Dates: start: 20120214
  33. NEULASTA [Concomitant]
     Active Substance: PEGFILGRASTIM
     Dates: start: 20211116
  34. ALDACTONE [Concomitant]
     Active Substance: SPIRONOLACTONE
     Dates: start: 20201219, end: 20211115
  35. FASTURTEC [Concomitant]
     Active Substance: RASBURICASE
     Dates: start: 20211115, end: 20211115
  36. HYDROCHLOROTHIAZIDE\NEBIVOLOL HYDROCHLORIDE [Concomitant]
     Active Substance: HYDROCHLOROTHIAZIDE\NEBIVOLOL HYDROCHLORIDE
     Dates: start: 20201211
  37. MAGNESIUM CLOFIBRATE [Concomitant]
     Active Substance: MAGNESIUM CLOFIBRATE
     Dates: start: 20210611
  38. LIDOCAINE [Concomitant]
     Active Substance: LIDOCAINE
     Dates: start: 20211230

REACTIONS (4)
  - Pneumonia [Recovered/Resolved]
  - Gastric ulcer [Not Recovered/Not Resolved]
  - Decreased appetite [Not Recovered/Not Resolved]
  - Off label use [Unknown]

NARRATIVE: CASE EVENT DATE: 20211115
